FAERS Safety Report 9384076 (Version 1)
Quarter: 2013Q3

REPORT INFORMATION
  Report Type: Spontaneous
  Country: US (occurrence: US)
  Receive Date: 20130705
  Receipt Date: 20130705
  Transmission Date: 20140515
  Serious: Yes (Death, Other)
  Sender: FDA-Public Use
  Company Number: US-JNJFOC-20130700745

PATIENT
  Sex: 0

DRUGS (2)
  1. ACETAMINOPHEN [Suspect]
     Route: 064
  2. ACETAMINOPHEN [Suspect]
     Indication: TOOTHACHE
     Dosage: FOR 2 WEEKS.
     Route: 064

REACTIONS (6)
  - Hepatomegaly [Fatal]
  - Ascites [Fatal]
  - Pericardial effusion [Fatal]
  - Cerebral ventricle dilatation [Fatal]
  - Craniocerebral injury [Fatal]
  - Foetal exposure during pregnancy [Fatal]
